FAERS Safety Report 7567866-8 (Version None)
Quarter: 2011Q2

REPORT INFORMATION
  Report Type: 
  Country: None (occurrence: None)
  Receive Date: 20110623
  Receipt Date: 20110615
  Transmission Date: 20111010
  Serious: Yes (Hospitalization, Other)
  Sender: FDA-Public Use
  Company Number: PL-ASTELLAS-2011EU001671

PATIENT
  Sex: Female
  Weight: 33 kg

DRUGS (5)
  1. TACROLIMUS [Suspect]
     Indication: DERMATITIS ATOPIC
     Dosage: 0.03 %, PRN
     Route: 065
     Dates: start: 20100324
  2. FLUTICASONE PROPIONATE [Concomitant]
     Indication: ASTHMA
     Dosage: 100 MG, BID
     Route: 065
     Dates: start: 20090720
  3. ZYRTEC [Concomitant]
     Indication: DERMATITIS ATOPIC
     Dosage: 5 MG, UNKNOWN/D
     Route: 065
     Dates: start: 20090525
  4. XYZAL [Concomitant]
     Indication: DERMATITIS ATOPIC
     Dosage: 5 MG, UNKNOWN/D
     Route: 065
     Dates: start: 20100324
  5. MONTELUKAST SODIUM [Concomitant]
     Indication: ASTHMA
     Dosage: 5 MG, UNKNOWN/D
     Route: 065
     Dates: start: 20090525

REACTIONS (2)
  - CONVULSION [None]
  - ASTHMA [None]
